FAERS Safety Report 6534394-8 (Version None)
Quarter: 2010Q1

REPORT INFORMATION
  Report Type: 
  Country: None (occurrence: None)
  Receive Date: 20100112
  Receipt Date: 20100103
  Transmission Date: 20100710
  Serious: Yes (Disabling)
  Sender: FDA-Public Use
  Company Number: US-SANOFI-AVENTIS-2010SA001149

PATIENT
  Sex: Female

DRUGS (3)
  1. LANTUS [Suspect]
     Indication: TYPE 2 DIABETES MELLITUS
     Dosage: 60 UNITS SLIDING SCALE
     Route: 058
     Dates: start: 20080101
  2. SOLOSTAR [Suspect]
     Indication: TYPE 2 DIABETES MELLITUS
     Dates: start: 20080101
  3. PREDNISONE TAB [Suspect]

REACTIONS (2)
  - BLOOD GLUCOSE INCREASED [None]
  - NEUROPATHY PERIPHERAL [None]
